FAERS Safety Report 24943476 (Version 1)
Quarter: 2025Q1

REPORT INFORMATION
  Report Type: Spontaneous
  Country: ES (occurrence: ES)
  Receive Date: 20250207
  Receipt Date: 20250207
  Transmission Date: 20250408
  Serious: Yes (Death)
  Sender: AMGEN
  Company Number: ES-ROCHE-2981486

PATIENT
  Age: 67 Year
  Sex: Male
  Weight: 89.8 kg

DRUGS (11)
  1. BEVACIZUMAB [Suspect]
     Active Substance: BEVACIZUMAB
     Indication: Non-small cell lung cancer metastatic
     Route: 065
     Dates: start: 20211109
  2. PACLITAXEL [Suspect]
     Active Substance: PACLITAXEL
     Indication: Non-small cell lung cancer metastatic
     Route: 065
     Dates: start: 20211109
  3. CARBOPLATIN [Suspect]
     Active Substance: CARBOPLATIN
     Indication: Non-small cell lung cancer metastatic
     Route: 065
     Dates: start: 20211109
  4. ATEZOLIZUMAB [Suspect]
     Active Substance: ATEZOLIZUMAB
     Indication: Non-small cell lung cancer metastatic
     Route: 042
     Dates: start: 20211109
  5. FLECAINIDE [Concomitant]
     Active Substance: FLECAINIDE
     Dosage: UNK UNK, BID
     Route: 065
     Dates: start: 20210217
  6. LANSOPRAZOLE [Concomitant]
     Active Substance: LANSOPRAZOLE
     Dosage: UNK UNK, QD
     Route: 065
     Dates: start: 20171004
  7. TORSEMIDE [Concomitant]
     Active Substance: TORSEMIDE
     Dosage: UNK, QD
     Route: 065
     Dates: start: 20150427
  8. ATORVASTATIN [Concomitant]
     Active Substance: ATORVASTATIN
     Dosage: UNK, QD
     Route: 065
     Dates: start: 20171004
  9. VALSARTAN [Concomitant]
     Active Substance: VALSARTAN
     Dosage: UNK UNK, QD
     Route: 065
     Dates: start: 20111220
  10. BEMIPARIN [Concomitant]
     Active Substance: BEMIPARIN
     Dosage: UNK UNK, QD
     Route: 065
     Dates: start: 20210927
  11. APIXABAN [Concomitant]
     Active Substance: APIXABAN
     Dosage: UNK UNK, BID
     Route: 065
     Dates: start: 20210217

REACTIONS (2)
  - Death [Fatal]
  - Asthenia [Recovered/Resolved]

NARRATIVE: CASE EVENT DATE: 20211129
